FAERS Safety Report 8226940-3 (Version None)
Quarter: 2012Q1

REPORT INFORMATION
  Report Type: 
  Country: None (occurrence: None)
  Receive Date: 20120322
  Receipt Date: 20120315
  Transmission Date: 20120608
  Serious: Yes (Other)
  Sender: FDA-Public Use
  Company Number: US-BAYER-2012-002896

PATIENT
  Age: 21 Year
  Sex: Female
  Weight: 74.83 kg

DRUGS (6)
  1. TYLOX [Concomitant]
  2. REGLAN [Concomitant]
  3. YASMIN [Suspect]
     Dosage: UNK
     Route: 048
     Dates: start: 20081001
  4. PHENERGAN [Concomitant]
  5. YAZ [Suspect]
     Dosage: UNK
     Route: 048
     Dates: start: 20081001
  6. NAPROSYN [Concomitant]

REACTIONS (4)
  - INJURY [None]
  - PAIN [None]
  - MESENTERIC VEIN THROMBOSIS [None]
  - PORTAL VEIN THROMBOSIS [None]
